FAERS Safety Report 8104024-2 (Version None)
Quarter: 2012Q1

REPORT INFORMATION
  Report Type: 
  Country: None (occurrence: None)
  Receive Date: 20120201
  Receipt Date: 20120123
  Transmission Date: 20120608
  Serious: Yes (Other)
  Sender: FDA-Public Use
  Company Number: US-AMGEN-USASP2012004918

PATIENT
  Age: 32 Year
  Sex: Male

DRUGS (1)
  1. ENBREL [Suspect]
     Indication: ANKYLOSING SPONDYLITIS
     Dosage: 50 MG, QWK
     Dates: start: 20100729

REACTIONS (8)
  - RHINORRHOEA [None]
  - HIV INFECTION [None]
  - SOMNOLENCE [None]
  - MUSCULOSKELETAL STIFFNESS [None]
  - FATIGUE [None]
  - BACK PAIN [None]
  - NECK PAIN [None]
  - NASOPHARYNGITIS [None]
